FAERS Safety Report 12439615 (Version 5)
Quarter: 2017Q1

REPORT INFORMATION
  Report Type: Spontaneous
  Country: GB (occurrence: GB)
  Receive Date: 20160606
  Receipt Date: 20170215
  Transmission Date: 20170428
  Serious: Yes (Hospitalization, Other)
  Sender: FDA-Public Use
  Company Number: GB-BIOGEN-2016BI00245964

PATIENT
  Sex: Female

DRUGS (1)
  1. PLEGRIDY [Suspect]
     Active Substance: PEGINTERFERON BETA-1A
     Indication: MULTIPLE SCLEROSIS
     Route: 058
     Dates: start: 20160107

REACTIONS (22)
  - Gastric cancer [Unknown]
  - Laceration [Unknown]
  - Blood test abnormal [Unknown]
  - Feeding disorder [Unknown]
  - Multiple sclerosis [Unknown]
  - Hypertension [Unknown]
  - Pneumonia [Unknown]
  - Muscle hypertrophy [Unknown]
  - Weight decreased [Unknown]
  - Vomiting [Unknown]
  - Eye disorder [Unknown]
  - Dizziness [Unknown]
  - Gastrointestinal carcinoma [Unknown]
  - Pulmonary sepsis [Unknown]
  - Speech disorder [Unknown]
  - Liver disorder [Unknown]
  - Pancreatic disorder [Unknown]
  - Gastric disorder [Unknown]
  - Brain neoplasm benign [Unknown]
  - Dyspnoea [Unknown]
  - Transient ischaemic attack [Unknown]
  - Feeling abnormal [Unknown]
